FAERS Safety Report 18701385 (Version 1)
Quarter: 2021Q1

REPORT INFORMATION
  Report Type: Spontaneous
  Country: US (occurrence: US)
  Receive Date: 20210105
  Receipt Date: 20210105
  Transmission Date: 20210419
  Serious: No
  Sender: FDA-Public Use
  Company Number: US-SA-2021SA001079

PATIENT

DRUGS (1)
  1. LANTUS SOLOSTAR [Suspect]
     Active Substance: INSULIN GLARGINE
     Dosage: 5 UNITS IN AM (MORNING) + 30 UNITS IN PM (EVENING OR NIGHT), BID
     Route: 065

REACTIONS (1)
  - Inappropriate schedule of product administration [Unknown]
